FAERS Safety Report 6395200-8 (Version None)
Quarter: 2009Q4

REPORT INFORMATION
  Report Type: 
  Country: None (occurrence: None)
  Receive Date: 20091009
  Receipt Date: 20090929
  Transmission Date: 20100525
  Serious: Yes (Death, Other)
  Sender: FDA-Public Use
  Company Number: US-PFIZER INC-2009276448

PATIENT
  Sex: Male
  Weight: 63.502 kg

DRUGS (1)
  1. VIAGRA [Suspect]

REACTIONS (3)
  - DEATH [None]
  - DIABETES MELLITUS [None]
  - HYPERTENSION [None]
